FAERS Safety Report 8309379-1 (Version None)
Quarter: 2012Q2

REPORT INFORMATION
  Report Type: 
  Country: None (occurrence: None)
  Receive Date: 20120420
  Receipt Date: 20120415
  Transmission Date: 20120825
  Serious: Yes (Hospitalization)
  Sender: FDA-Public Use
  Company Number: 2011SP052568

PATIENT
  Age: 52 Year
  Sex: Male

DRUGS (2)
  1. HEPTOVIR [Concomitant]
  2. PEG-INTRON [Suspect]
     Indication: HEPATITIS C
     Dosage: 150 MCG SC
     Route: 058
     Dates: start: 20120120

REACTIONS (5)
  - PNEUMONIA [None]
  - THROMBOSIS [None]
  - ANXIETY [None]
  - ASTHENIA [None]
  - DYSPNOEA [None]
